FAERS Safety Report 8965546 (Version 1)
Quarter: 2012Q4

REPORT INFORMATION
  Report Type: Spontaneous
  Country: DK (occurrence: None)
  Receive Date: 20121205
  Receipt Date: 20121205
  Transmission Date: 20130627
  Serious: Yes (Disabling)
  Sender: FDA-Public Use
  Company Number: 2012MA013751

PATIENT
  Age: 53 Year
  Sex: Female

DRUGS (3)
  1. MIRTAZAPINE TABLETS [Suspect]
     Dosage: 15 MG; ;PO
     Route: 048
     Dates: start: 20120406
  2. LITHIUM [Concomitant]
  3. DIAZEPAM [Concomitant]

REACTIONS (1)
  - Restless legs syndrome [None]
